FAERS Safety Report 7184322-X (Version None)
Quarter: 2010Q4

REPORT INFORMATION
  Report Type: 
  Country: None (occurrence: None)
  Receive Date: 20101222
  Receipt Date: 20100521
  Transmission Date: 20110411
  Serious: Yes (Other)
  Sender: FDA-Public Use
  Company Number: US-AMGEN-KDL413730

PATIENT

DRUGS (1)
  1. ENBREL [Suspect]
     Indication: RHEUMATOID ARTHRITIS
     Dosage: 25 MG, 2 TIMES/WK
     Route: 058
     Dates: start: 20040601

REACTIONS (6)
  - BASAL CELL CARCINOMA [None]
  - DRUG HYPERSENSITIVITY [None]
  - HYPERKERATOSIS [None]
  - IMPAIRED HEALING [None]
  - INJECTION SITE REACTION [None]
  - SWEAT GLAND TUMOUR [None]
